FAERS Safety Report 9353757 (Version 1)
Quarter: 2013Q2

REPORT INFORMATION
  Report Type: Spontaneous
  Country: US (occurrence: None)
  Receive Date: 20130617
  Receipt Date: 20130617
  Transmission Date: 20140414
  Serious: Yes (Other)
  Sender: FDA-Public Use
  Company Number: None

PATIENT
  Age: 62 Year
  Sex: Female

DRUGS (1)
  1. AZITHROMYCIN [Suspect]
     Indication: PULMONARY CONGESTION
     Dosage: 2 TAB DAY 1, 1 TAB DAY 2-5?
     Route: 048
     Dates: start: 20130528, end: 20130601

REACTIONS (4)
  - Nausea [None]
  - Myocardial infarction [None]
  - Hepatotoxicity [None]
  - Blood potassium decreased [None]
